FAERS Safety Report 9932121 (Version 1)
Quarter: 2014Q1

REPORT INFORMATION
  Report Type: Spontaneous
  Country: US (occurrence: US)
  Receive Date: 20140228
  Receipt Date: 20140228
  Transmission Date: 20141002
  Serious: No
  Sender: FDA-Public Use
  Company Number: US-ABBVIE-13P-163-1108756-00

PATIENT
  Sex: Male
  Weight: 99.88 kg

DRUGS (3)
  1. ANDROGEL [Suspect]
     Indication: PRODUCT USED FOR UNKNOWN INDICATION
     Dosage: 2 PUMPS DAILY
     Dates: start: 2009, end: 2012
  2. ANDROGEL [Suspect]
     Dates: start: 2013
  3. ZYRTEC [Concomitant]
     Indication: PRODUCT USED FOR UNKNOWN INDICATION

REACTIONS (5)
  - Drug ineffective [Unknown]
  - Dysuria [Recovered/Resolved]
  - Prostatic specific antigen increased [Recovering/Resolving]
  - Prostatomegaly [Recovered/Resolved]
  - Erectile dysfunction [Not Recovered/Not Resolved]
